FAERS Safety Report 5794905-7 (Version None)
Quarter: 2008Q2

REPORT INFORMATION
  Report Type: 
  Country: None (occurrence: None)
  Receive Date: 20080626
  Receipt Date: 20080618
  Transmission Date: 20081010
  Serious: Yes (Hospitalization)
  Sender: FDA-Public Use
  Company Number: E2020-02629-SPO-DE

PATIENT
  Age: 66 Year
  Sex: Female

DRUGS (8)
  1. ARICEPT [Suspect]
     Indication: DEMENTIA ALZHEIMER'S TYPE
     Dosage: 5 MG, 1 IN 1 D, ORAL
     Route: 048
     Dates: start: 20080321, end: 20080321
  2. SIMVASTATIN [Suspect]
  3. BISOPROLOL FUMARATE [Concomitant]
  4. LISINOPRIL [Concomitant]
  5. ACETYLSALICYLIC ACID SRT [Concomitant]
  6. L-THYROX (LEVOTHYROXINE) [Concomitant]
  7. METFORMIN HCL [Concomitant]
  8. SIMVASTATIN [Concomitant]

REACTIONS (5)
  - DRY MOUTH [None]
  - EXTRAPYRAMIDAL DISORDER [None]
  - HYPERTENSIVE CRISIS [None]
  - MUSCLE SPASMS [None]
  - RESTLESSNESS [None]
